FAERS Safety Report 8961036 (Version 1)
Quarter: 2012Q4

REPORT INFORMATION
  Report Type: 
  Country: DE (occurrence: DE)
  Receive Date: 20121212
  Receipt Date: 20121212
  Transmission Date: 20130627
  Serious: Yes (Other)
  Sender: FDA-Public Use
  Company Number: DE-MYLANLABS-2012S1024681

PATIENT
  Age: 71 Year
  Sex: Female

DRUGS (2)
  1. PRAVASTATIN [Suspect]
     Indication: PRODUCT USED FOR UNKNOWN INDICATION
     Dosage: daily dose: 20 Mg millgram(s) every Days
  2. DICLOFENAC [Suspect]
     Indication: PRODUCT USED FOR UNKNOWN INDICATION
     Dosage: daily dose: 50 Mg millgram(s) every Days

REACTIONS (3)
  - Chromaturia [Unknown]
  - Nausea [Unknown]
  - Hepatic enzyme increased [Unknown]
